FAERS Safety Report 18132349 (Version 1)
Quarter: 2020Q3

REPORT INFORMATION
  Report Type: Report from Study
  Country: US (occurrence: US)
  Receive Date: 20200811
  Receipt Date: 20200811
  Transmission Date: 20201103
  Serious: No
  Sender: FDA-Public Use
  Company Number: NVSC2020US219685

PATIENT
  Sex: Female
  Weight: 45 kg

DRUGS (1)
  1. ILARIS [Suspect]
     Active Substance: CANAKINUMAB
     Indication: IMPLANTABLE DEFIBRILLATOR INSERTION
     Dosage: 150 MG, (EVERY FOUR WEEKS)
     Route: 058

REACTIONS (1)
  - Drug intolerance [Unknown]
